FAERS Safety Report 6029902-X (Version None)
Quarter: 2009Q1

REPORT INFORMATION
  Report Type: 
  Country: None (occurrence: None)
  Receive Date: 20090105
  Receipt Date: 20090105
  Transmission Date: 20090719
  Serious: Yes (Other)
  Sender: FDA-Public Use
  Company Number: None

PATIENT
  Age: 47 Year
  Sex: Female
  Weight: 63.5036 kg

DRUGS (1)
  1. PERCOCET [Suspect]
     Indication: KNEE OPERATION
     Dosage: ONE TABLET EVERY 4-6 HOURS PO 2 DOSES WITHIN 8 HOUR
     Route: 048
     Dates: start: 20081117, end: 20081117

REACTIONS (4)
  - HALLUCINATION [None]
  - NAUSEA [None]
  - SYNCOPE [None]
  - VOMITING [None]
